FAERS Safety Report 13803555 (Version 5)
Quarter: 2017Q4

REPORT INFORMATION
  Report Type: Spontaneous
  Country: JP (occurrence: JP)
  Receive Date: 20170728
  Receipt Date: 20171110
  Transmission Date: 20180320
  Serious: Yes (Hospitalization)
  Sender: FDA-Public Use
  Company Number: JP-PFIZER INC-2017320330

PATIENT
  Age: 74 Year
  Sex: Female
  Weight: 57.5 kg

DRUGS (4)
  1. LYRICA [Suspect]
     Active Substance: PREGABALIN
     Indication: PAIN
     Dosage: 25 MG, 2X/DAY
     Route: 048
     Dates: start: 20161118, end: 20161125
  2. TRAMAL [Suspect]
     Active Substance: TRAMADOL
     Indication: PAIN
     Dosage: 25 MG, 2X/DAY
     Route: 048
     Dates: start: 20160419
  3. LYRICA [Suspect]
     Active Substance: PREGABALIN
     Dosage: 50 MG, 2X/DAY
     Route: 048
     Dates: start: 20161125, end: 20161227
  4. TRAMAL [Suspect]
     Active Substance: TRAMADOL
     Indication: PAIN
     Dosage: 25 MG, 2X/DAY
     Route: 048
     Dates: start: 20130604

REACTIONS (4)
  - Weight increased [Recovered/Resolved]
  - Cardiac failure acute [Unknown]
  - Generalised oedema [Recovered/Resolved]
  - Orthopnoea [Recovered/Resolved]

NARRATIVE: CASE EVENT DATE: 20161208
